FAERS Safety Report 24642097 (Version 2)
Quarter: 2025Q1

REPORT INFORMATION
  Report Type: Spontaneous
  Country: US (occurrence: US)
  Receive Date: 20241120
  Receipt Date: 20250208
  Transmission Date: 20250409
  Serious: No
  Sender: ROCHE
  Company Number: US-ROCHE-10000135501

PATIENT
  Age: 59 Year
  Sex: Female
  Weight: 104.33 kg

DRUGS (4)
  1. XOLAIR [Suspect]
     Active Substance: OMALIZUMAB
     Indication: Parosmia
     Dosage: 300 MG/2 ML
     Route: 058
     Dates: start: 20241003
  2. XOLAIR [Suspect]
     Active Substance: OMALIZUMAB
     Indication: Chronic obstructive pulmonary disease
  3. XOLAIR [Suspect]
     Active Substance: OMALIZUMAB
     Indication: Asthma
  4. PREDNISONE [Concomitant]
     Active Substance: PREDNISONE
     Indication: Parosmia

REACTIONS (2)
  - Ileus [Recovering/Resolving]
  - Abdominal pain [Recovering/Resolving]

NARRATIVE: CASE EVENT DATE: 20241003
